FAERS Safety Report 9995806 (Version 1)
Quarter: 2014Q1

REPORT INFORMATION
  Report Type: Spontaneous
  Country: US (occurrence: US)
  Receive Date: 20140311
  Receipt Date: 20140311
  Transmission Date: 20141002
  Serious: Yes (Hospitalization)
  Sender: FDA-Public Use
  Company Number: US-BAYER-2014-033870

PATIENT
  Age: 20 Year
  Sex: Female
  Weight: 61.22 kg

DRUGS (3)
  1. YAZ [Suspect]
  2. YASMIN [Suspect]
     Indication: CONTRACEPTION
  3. DARVOCET-N [Concomitant]
     Indication: PAIN
     Dosage: 100

REACTIONS (1)
  - Deep vein thrombosis [None]
